FAERS Safety Report 10161807 (Version 1)
Quarter: 2014Q2

REPORT INFORMATION
  Report Type: Spontaneous
  Country: GB (occurrence: None)
  Receive Date: 20140507
  Receipt Date: 20140507
  Transmission Date: 20141212
  Serious: Yes (Disabling)
  Sender: FDA-Public Use
  Company Number: AUR-APL-2014-05345

PATIENT
  Age: 76 Year
  Sex: Female
  Weight: 60.8 kg

DRUGS (1)
  1. SERTRALINE (SERTRALINE) [Suspect]
     Indication: PRODUCT USED FOR UNKNOWN INDICATION

REACTIONS (3)
  - Tardive dyskinesia [None]
  - Tremor [None]
  - Dyskinesia [None]
